FAERS Safety Report 20131508 (Version 2)
Quarter: 2021Q4

REPORT INFORMATION
  Report Type: Report from Study
  Country: TW (occurrence: None)
  Receive Date: 20211130
  Receipt Date: 20211204
  Transmission Date: 20220304
  Serious: Yes (Death, Hospitalization)
  Sender: FDA-Public Use
  Company Number: TW-ROCHE-2917034

PATIENT
  Age: 68 Year
  Sex: Male
  Weight: 71.8 kg

DRUGS (34)
  1. ATEZOLIZUMAB [Suspect]
     Active Substance: ATEZOLIZUMAB
     Indication: Hepatocellular carcinoma
     Dosage: 03/SEP/2021: START DATE OF MOST RECENT DOSE(1200 MG) OF STUDY DRUG PRIOR TO AE.?05/NOV/2021: START D
     Route: 041
     Dates: start: 20210903
  2. TIRAGOLUMAB [Suspect]
     Active Substance: TIRAGOLUMAB
     Indication: Hepatocellular carcinoma
     Dosage: 03/SEP/2021:START DATE OF MOST RECENT DOSE(600 MG) OF STUDY DRUG PRIOR TO AE. ?05/NOV/2021:START DAT
     Route: 042
     Dates: start: 20210903
  3. BEVACIZUMAB [Suspect]
     Active Substance: BEVACIZUMAB
     Indication: Hepatocellular carcinoma
     Dosage: 03/SEP/2021:START DATE OF MOST RECENT DOSE (1071 MG) OF STUDY DRUG PRIOR TO AE.?05/NOV/2021:START DA
     Route: 042
     Dates: start: 20210903
  4. PROPRANOLOL HYDROCHLORIDE [Concomitant]
     Active Substance: PROPRANOLOL HYDROCHLORIDE
     Indication: Varices oesophageal
     Dates: start: 20210817
  5. SODIUM CHLORIDE [Concomitant]
     Active Substance: SODIUM CHLORIDE
     Dates: start: 20210921, end: 20210922
  6. SODIUM CHLORIDE [Concomitant]
     Active Substance: SODIUM CHLORIDE
     Dates: start: 20210927, end: 20210927
  7. SODIUM CHLORIDE [Concomitant]
     Active Substance: SODIUM CHLORIDE
     Dates: start: 20211113, end: 20211115
  8. SODIUM CHLORIDE [Concomitant]
     Active Substance: SODIUM CHLORIDE
     Dates: start: 20211116, end: 20211117
  9. SODIUM CHLORIDE [Concomitant]
     Active Substance: SODIUM CHLORIDE
     Dates: start: 20211119
  10. BROTIZOLAM [Concomitant]
     Active Substance: BROTIZOLAM
     Indication: Insomnia
     Dates: start: 20210926, end: 20210926
  11. HALOPERIDOL [Concomitant]
     Active Substance: HALOPERIDOL
     Indication: Delirium
     Route: 030
     Dates: start: 20210927, end: 20210927
  12. HALOPERIDOL [Concomitant]
     Active Substance: HALOPERIDOL
     Dates: start: 20211117, end: 20211120
  13. HALOPERIDOL [Concomitant]
     Active Substance: HALOPERIDOL
     Dates: start: 20210927
  14. RISPERIDONE [Concomitant]
     Active Substance: RISPERIDONE
     Indication: Delirium
     Route: 048
     Dates: start: 20210927
  15. ZOPICLONE [Concomitant]
     Active Substance: ZOPICLONE
     Indication: Delirium
     Dates: start: 20210927, end: 20210927
  16. DIPHENHYDRAMINE HYDROCHLORIDE [Concomitant]
     Active Substance: DIPHENHYDRAMINE HYDROCHLORIDE
     Indication: Insomnia
     Dates: start: 20210920, end: 20210921
  17. DIPHENHYDRAMINE HYDROCHLORIDE [Concomitant]
     Active Substance: DIPHENHYDRAMINE HYDROCHLORIDE
     Dates: start: 20211001, end: 20211001
  18. ACTEIN EFFERVESCENT [Concomitant]
     Indication: Prophylaxis
     Dates: start: 20211113
  19. CHLORPHENIRAMINE MALEATE [Concomitant]
     Active Substance: CHLORPHENIRAMINE MALEATE
     Indication: Prophylaxis
     Dates: start: 20211115, end: 20211118
  20. ICHDERM [Concomitant]
     Indication: Prophylaxis
     Dates: start: 20211116
  21. INDOMETHACIN [Concomitant]
     Active Substance: INDOMETHACIN
     Indication: Analgesic therapy
     Dates: start: 20211022, end: 20211105
  22. DIMETHICONE [Concomitant]
     Active Substance: DIMETHICONE
     Dates: start: 20211113, end: 20211119
  23. URSODIOL [Concomitant]
     Active Substance: URSODIOL
     Indication: Cholestasis
     Route: 048
     Dates: start: 20211117, end: 20211119
  24. QUETIAPINE [Concomitant]
     Active Substance: QUETIAPINE
     Indication: Delirium
     Route: 048
     Dates: start: 20211015, end: 20211119
  25. STROCAIN (TAIWAN) [Concomitant]
     Dates: start: 20211112, end: 20211119
  26. ESOMEPRAZOLE MAGNESIUM [Concomitant]
     Active Substance: ESOMEPRAZOLE MAGNESIUM
     Dates: start: 20211117, end: 20211122
  27. TAMSULOSIN HYDROCHLORIDE [Concomitant]
     Active Substance: TAMSULOSIN HYDROCHLORIDE
     Dates: start: 20211117, end: 20211119
  28. VALSARTAN [Concomitant]
     Active Substance: VALSARTAN
     Indication: Hypertension
     Dates: start: 20210910, end: 20210919
  29. METOCLOPRAMIDE HYDROCHLORIDE [Concomitant]
     Active Substance: METOCLOPRAMIDE HYDROCHLORIDE
     Indication: Decreased appetite
     Dates: start: 20210910, end: 20210924
  30. AMLODIPINE [Concomitant]
     Active Substance: AMLODIPINE BESYLATE
     Indication: Hypertension
  31. BISACODYL [Concomitant]
     Active Substance: BISACODYL
  32. LEVOPHED [Concomitant]
     Active Substance: NOREPINEPHRINE BITARTRATE
     Indication: Hypotension
     Dates: start: 20211122, end: 20211122
  33. PIPERACILLIN SODIUM\TAZOBACTAM SODIUM [Concomitant]
     Active Substance: PIPERACILLIN SODIUM\TAZOBACTAM SODIUM
     Indication: Infection
     Route: 042
     Dates: start: 20211122, end: 20211122
  34. SODIUM BICARBONATE [Concomitant]
     Active Substance: SODIUM BICARBONATE
     Indication: Respiratory acidosis
     Dates: start: 20210922, end: 20210922

REACTIONS (3)
  - Cholestasis [Fatal]
  - Hyperammonaemia [Recovering/Resolving]
  - Hyperthyroidism [Unknown]

NARRATIVE: CASE EVENT DATE: 20210908
